FAERS Safety Report 11249538 (Version 1)
Quarter: 2015Q3

REPORT INFORMATION
  Report Type: Spontaneous
  Country: US (occurrence: US)
  Receive Date: 20150708
  Receipt Date: 20150708
  Transmission Date: 20151125
  Serious: Yes (Hospitalization, Other)
  Sender: FDA-Public Use
  Company Number: US-ELI_LILLY_AND_COMPANY-US201007006962

PATIENT
  Age: 79 Year
  Sex: Female

DRUGS (4)
  1. CISPLATIN. [Concomitant]
     Active Substance: CISPLATIN
     Dosage: UNK, UNKNOWN
  2. DOXORUBICIN [Concomitant]
     Active Substance: DOXORUBICIN
  3. CISPLATIN. [Concomitant]
     Active Substance: CISPLATIN
     Dosage: 75 MG/M2, UNK
  4. ALIMTA [Suspect]
     Active Substance: PEMETREXED DISODIUM
     Indication: MESOTHELIOMA MALIGNANT
     Dosage: 500 MG/M2, OTHER

REACTIONS (3)
  - Mucosal inflammation [Not Recovered/Not Resolved]
  - Vaginal inflammation [Not Recovered/Not Resolved]
  - Febrile neutropenia [Not Recovered/Not Resolved]
